FAERS Safety Report 5180162-1 (Version None)
Quarter: 2006Q4

REPORT INFORMATION
  Report Type: 
  Country: None (occurrence: None)
  Receive Date: 20061212
  Receipt Date: 20061201
  Transmission Date: 20070319
  Serious: Yes (Disabling)
  Sender: FDA-Public Use
  Company Number: GXKR2006GB07805

PATIENT
  Age: 44 Year
  Sex: Female
  Weight: 65 kg

DRUGS (1)
  1. TRIMETHOPRIM [Suspect]
     Indication: CYSTITIS
     Dosage: 200 MG, ORAL
     Route: 048
     Dates: start: 20061020, end: 20061020

REACTIONS (7)
  - ARTHRALGIA [None]
  - BACK PAIN [None]
  - LIP SWELLING [None]
  - LOCAL SWELLING [None]
  - PAIN IN EXTREMITY [None]
  - PETECHIAE [None]
  - SWELLING FACE [None]
